FAERS Safety Report 4421067-0 (Version None)
Quarter: 2004Q3

REPORT INFORMATION
  Report Type: 
  Country: None (occurrence: None)
  Receive Date: 20040803
  Receipt Date: 20040720
  Transmission Date: 20050211
  Serious: Yes (Hospitalization)
  Sender: FDA-Public Use
  Company Number: CA-JNJFOC-20040704519

PATIENT
  Age: 58 Year
  Sex: Male
  Weight: 111.9 kg

DRUGS (12)
  1. REMICADE [Suspect]
     Indication: PSORIATIC ARTHROPATHY
     Dosage: 400 MG, 1 IN 4 WEEK, INTRAVENOUS
     Route: 042
     Dates: start: 20040522
  2. PLAQUENIL [Concomitant]
  3. PANTOLOC (PANTOPRAZOLE) [Concomitant]
  4. CELEBREX [Concomitant]
  5. METHOTREXATE SODIUM [Concomitant]
  6. LEUCOVORIN CALCIUM [Concomitant]
  7. ENTROPHEN (ACETYLSALICYLIC ACID) [Concomitant]
  8. METOPROLOL (METOPROLOL) [Concomitant]
  9. NITRO (GLYCERYL TRINITRATE) SPRAY [Concomitant]
  10. STEROIDS (CORTICOSTEROID NOS) [Concomitant]
  11. FOLIC ACID [Concomitant]
  12. ASPIRIN [Concomitant]

REACTIONS (10)
  - ARTHRALGIA [None]
  - BRONCHITIS [None]
  - CHILLS [None]
  - DRUG INEFFECTIVE [None]
  - HEADACHE [None]
  - HYPERHIDROSIS [None]
  - INFECTION [None]
  - PLEURAL EFFUSION [None]
  - RED BLOOD CELL SEDIMENTATION RATE INCREASED [None]
  - WHITE BLOOD CELL COUNT DECREASED [None]
